FAERS Safety Report 5025747-8 (Version None)
Quarter: 2006Q2

REPORT INFORMATION
  Report Type: 
  Country: None (occurrence: None)
  Receive Date: 20060427
  Receipt Date: 20051113
  Transmission Date: 20061013
  Serious: Yes (Other)
  Sender: FDA-Public Use
  Company Number: 2005154454

PATIENT
  Age: 51 Year
  Sex: Male
  Weight: 90.7194 kg

DRUGS (4)
  1. ZITHROMAX [Suspect]
     Indication: BRONCHITIS
     Dosage: 500 MG (250 MG, 2 IN 1 D), ORAL; SEE IMAGE
     Route: 048
     Dates: start: 20051101, end: 20051101
  2. ZITHROMAX [Suspect]
     Indication: BRONCHITIS
     Dosage: 500 MG (250 MG, 2 IN 1 D), ORAL; SEE IMAGE
     Route: 048
     Dates: start: 20051101, end: 20051112
  3. LIPITOR [Concomitant]
  4. ASPIRIN [Concomitant]

REACTIONS (2)
  - DEAFNESS [None]
  - TINNITUS [None]
